FAERS Safety Report 21195150 (Version 1)
Quarter: 2022Q3

REPORT INFORMATION
  Report Type: Spontaneous
  Country: JP (occurrence: JP)
  Receive Date: 20220810
  Receipt Date: 20220810
  Transmission Date: 20221027
  Serious: Yes (Other)
  Sender: FDA-Public Use
  Company Number: JP-PFIZER INC-PV202200035987

PATIENT
  Age: 1 Year
  Sex: Female

DRUGS (3)
  1. SILDENAFIL CITRATE [Suspect]
     Active Substance: SILDENAFIL CITRATE
     Indication: Vasodilatation
     Route: 048
  2. MACITENTAN [Suspect]
     Active Substance: MACITENTAN
     Indication: Vasodilatation
     Route: 048
  3. NITRIC OXIDE [Concomitant]
     Active Substance: NITRIC OXIDE
     Route: 055

REACTIONS (1)
  - Interstitial lung disease [Recovered/Resolved]
